FAERS Safety Report 6526744-3 (Version None)
Quarter: 2009Q4

REPORT INFORMATION
  Report Type: 
  Country: None (occurrence: None)
  Receive Date: 20091214
  Receipt Date: 20081211
  Transmission Date: 20100525
  Serious: Yes (Hospitalization)
  Sender: FDA-Public Use
  Company Number: 602797

PATIENT
  Age: 50 Year
  Sex: Female

DRUGS (2)
  1. PEGASYS [Suspect]
     Indication: HEPATITIS C
     Dosage: 180 UG
     Dates: start: 20080101
  2. COPEGUS [Suspect]
     Indication: HEPATITIS C
     Dosage: 1000 MG
     Dates: start: 20080101

REACTIONS (1)
  - HAEMOGLOBIN DECREASED [None]
